FAERS Safety Report 6011693-X (Version None)
Quarter: 2008Q4

REPORT INFORMATION
  Report Type: 
  Country: None (occurrence: None)
  Receive Date: 20081218
  Receipt Date: 20081205
  Transmission Date: 20090506
  Serious: Yes (Hospitalization)
  Sender: FDA-Public Use
  Company Number: US-SOLVAY-00208005858

PATIENT
  Age: 31359 Day
  Sex: Male
  Weight: 72.72 kg

DRUGS (3)
  1. ANDROGEL [Suspect]
     Indication: DRUG USE FOR UNKNOWN INDICATION
     Dosage: DAILY DOSE: 7.5 GRAM(S),AS USED:6 PUMPS,FREQUENCY:ONCE A DAY
     Route: 061
     Dates: start: 20080701, end: 20081001
  2. ANDROGEL [Suspect]
     Dosage: DAILY DOSE: 7.5 GRAM(S), AS USED:6 PUMPS, FREQUENCY:ONCE A DAY
     Route: 061
     Dates: start: 20081101, end: 20081201
  3. ANDROGEL [Suspect]
     Dosage: DAILY DOSE: 5 GRAM(S) AS USED:4 PUMPS, FREQUENCY:ONCE A DAY
     Route: 061
     Dates: start: 20081201

REACTIONS (3)
  - DYSURIA [None]
  - HIP ARTHROPLASTY [None]
  - PROSTATIC SPECIFIC ANTIGEN INCREASED [None]
